FAERS Safety Report 4978977-5 (Version None)
Quarter: 2006Q2

REPORT INFORMATION
  Report Type: 
  Country: None (occurrence: None)
  Receive Date: 20060419
  Receipt Date: 20060419
  Transmission Date: 20061013
  Serious: Yes (Disabling)
  Sender: FDA-Public Use
  Company Number: None

PATIENT
  Sex: Female
  Weight: 56.6996 kg

DRUGS (1)
  1. LEVAQUIN [Suspect]
     Indication: SINUSITIS
     Dates: start: 20060308, end: 20060413

REACTIONS (4)
  - ARTHRALGIA [None]
  - FALL [None]
  - SWELLING FACE [None]
  - TENDON RUPTURE [None]
